FAERS Safety Report 14819700 (Version 1)
Quarter: 2018Q2

REPORT INFORMATION
  Report Type: Spontaneous
  Country: US (occurrence: US)
  Receive Date: 20180427
  Receipt Date: 20180427
  Transmission Date: 20180711
  Serious: Yes (Other)
  Sender: FDA-Public Use
  Company Number: US-009507513-1804USA004168

PATIENT
  Sex: Female

DRUGS (1)
  1. NEXPLANON [Suspect]
     Active Substance: ETONOGESTREL
     Indication: CONTRACEPTION
     Dosage: 1 IMPLANT, ONCE, FOR UP TO THREE YEARS
     Route: 059

REACTIONS (6)
  - Headache [Unknown]
  - Contusion [Unknown]
  - Scar [Unknown]
  - Weight loss poor [Unknown]
  - Menstruation irregular [Unknown]
  - Mood swings [Unknown]
